FAERS Safety Report 12965217 (Version 1)
Quarter: 2016Q4

REPORT INFORMATION
  Report Type: Spontaneous
  Country: JP (occurrence: JP)
  Receive Date: 20161122
  Receipt Date: 20161122
  Transmission Date: 20170207
  Serious: Yes (Death)
  Sender: FDA-Public Use
  Company Number: JP-MALLINCKRODT-T201502549

PATIENT
  Age: 46 Year
  Sex: Female
  Weight: 44 kg

DRUGS (14)
  1. METHADONE [Suspect]
     Active Substance: METHADONE HYDROCHLORIDE
     Indication: CANCER PAIN
     Dosage: 15 MG DAILY DOSE
     Route: 048
     Dates: start: 20140429, end: 20140825
  2. OXYCONTIN [Suspect]
     Active Substance: OXYCODONE HYDROCHLORIDE
     Dosage: 10 MG DAILY DOSE
     Route: 048
     Dates: start: 20140506, end: 20140512
  3. OXINORM [Concomitant]
     Active Substance: OXYCODONE HYDROCHLORIDE
     Dosage: 5 MG, PRN
     Route: 048
     Dates: start: 20140428
  4. GOREISAN [Concomitant]
     Active Substance: HERBALS
     Dosage: 3 DF
     Route: 048
     Dates: end: 20140805
  5. NOVAMIN [Concomitant]
     Active Substance: PROCHLORPERAZINE MALEATE
     Dosage: 15 MG
     Route: 048
     Dates: end: 20140430
  6. OXYCONTIN [Suspect]
     Active Substance: OXYCODONE HYDROCHLORIDE
     Indication: ANALGESIC THERAPY
     Dosage: 20 MG DAILY DOSE
     Route: 048
     Dates: end: 20140505
  7. BEVACIZUMAB RECOMBINANT [Concomitant]
     Active Substance: BEVACIZUMAB
     Dosage: 121 MG
     Route: 051
     Dates: end: 20140728
  8. LENDORMIN [Concomitant]
     Active Substance: BROTIZOLAM
     Dosage: 0.25 MG
     Route: 048
     Dates: end: 20140805
  9. CELECOX [Concomitant]
     Active Substance: CELECOXIB
     Indication: ANALGESIC THERAPY
     Dosage: 100 MG
     Route: 048
     Dates: end: 20140805
  10. MAGMITT [Concomitant]
     Active Substance: MAGNESIUM OXIDE
     Dosage: 990 MG
     Route: 048
     Dates: end: 20140805
  11. MUCOSTA [Concomitant]
     Active Substance: REBAMIPIDE
     Dosage: 200 MG
     Route: 048
     Dates: end: 20140805
  12. PACLITAXEL. [Concomitant]
     Active Substance: PACLITAXEL
     Dosage: 135 MG
     Route: 051
     Dates: end: 20140728
  13. ISOBIDE [Concomitant]
     Active Substance: ISOSORBIDE
     Dosage: 90 ML
     Route: 048
     Dates: end: 20140605
  14. PANTETHINE [Concomitant]
     Active Substance: PANTETHINE
     Dosage: 300 MG
     Route: 048
     Dates: end: 20140805

REACTIONS (2)
  - Breast cancer [Fatal]
  - Somnolence [Recovered/Resolved]

NARRATIVE: CASE EVENT DATE: 20140506
